FAERS Safety Report 4525651-5 (Version None)
Quarter: 2004Q4

REPORT INFORMATION
  Report Type: 
  Country: None (occurrence: None)
  Receive Date: 20041116
  Receipt Date: 20041008
  Transmission Date: 20050328
  Serious: No
  Sender: FDA-Public Use
  Company Number: S04-USA-06691-01

PATIENT
  Age: 76 Year
  Sex: Female
  Weight: 47.1741 kg

DRUGS (6)
  1. NAMENDA [Suspect]
     Indication: DEMENTIA ALZHEIMER'S TYPE
     Dosage: 5 MG BID PO
     Route: 048
     Dates: start: 20041007
  2. NAMENDA [Suspect]
     Indication: DEMENTIA ALZHEIMER'S TYPE
     Dosage: 5 MG QD PO
     Route: 048
     Dates: start: 20040930, end: 20041006
  3. ARICEPT [Concomitant]
  4. ZOLOFT [Concomitant]
  5. CALCIUM [Concomitant]
  6. ASPIRIN [Concomitant]

REACTIONS (1)
  - APHASIA [None]
